FAERS Safety Report 8175804-2 (Version None)
Quarter: 2012Q1

REPORT INFORMATION
  Report Type: 
  Country: None (occurrence: None)
  Receive Date: 20120228
  Receipt Date: 20120215
  Transmission Date: 20120608
  Serious: Yes (Hospitalization, Other)
  Sender: FDA-Public Use
  Company Number: 2012P1005339

PATIENT
  Age: 16 Year
  Sex: Male

DRUGS (3)
  1. LAMOTRIGINE [Suspect]
     Indication: CONVULSION
     Dosage: ;PO
     Route: 048
  2. VIMPAT [Suspect]
     Dosage: 200 MG;AM; 100 MG;PM
  3. TEGRETOL [Concomitant]

REACTIONS (4)
  - DIZZINESS [None]
  - PRODUCT SUBSTITUTION ISSUE [None]
  - CONVULSION [None]
  - FATIGUE [None]
